FAERS Safety Report 8450741-4 (Version None)
Quarter: 2012Q2

REPORT INFORMATION
  Report Type: 
  Country: None (occurrence: None)
  Receive Date: 20120620
  Receipt Date: 20120608
  Transmission Date: 20120825
  Serious: Yes (Hospitalization)
  Sender: FDA-Public Use
  Company Number: JP-VERTEX PHARMACEUTICALS INC.-AE-2012-008787

PATIENT
  Age: 57 Year
  Sex: Female

DRUGS (5)
  1. URSO 250 [Concomitant]
     Route: 048
  2. PEGINTERFERON ALFA-2B [Concomitant]
     Indication: HEPATITIS C
     Route: 051
     Dates: start: 20120403, end: 20120507
  3. RIBAVIRIN [Concomitant]
     Route: 048
     Dates: start: 20120501, end: 20120514
  4. RIBAVIRIN [Concomitant]
     Indication: HEPATITIS C
     Route: 048
     Dates: start: 20120403, end: 20120430
  5. TELAVIC (TELAPREVIR) [Suspect]
     Indication: HEPATITIS C
     Route: 048
     Dates: start: 20120403, end: 20120510

REACTIONS (1)
  - URINARY TRACT INFECTION [None]
